FAERS Safety Report 5495830-1 (Version None)
Quarter: 2007Q4

REPORT INFORMATION
  Report Type: 
  Country: None (occurrence: None)
  Receive Date: 20071025
  Receipt Date: 20061121
  Transmission Date: 20080405
  Serious: No
  Sender: FDA-Public Use
  Company Number: A0625374A

PATIENT
  Age: 61 Year
  Sex: Male

DRUGS (6)
  1. ADVAIR DISKUS 100/50 [Suspect]
     Indication: CHRONIC OBSTRUCTIVE PULMONARY DISEASE
     Dosage: 1PUFF TWICE PER DAY
     Route: 055
     Dates: start: 20021101
  2. ALBUTEROL [Concomitant]
  3. TERAZOSIN HCL [Concomitant]
  4. CODEINE [Concomitant]
  5. DIAZEPAM [Concomitant]
  6. MOXIFLOXACIN HCL [Concomitant]

REACTIONS (3)
  - DYSPHONIA [None]
  - MICTURITION DISORDER [None]
  - PHARYNGOLARYNGEAL PAIN [None]
